FAERS Safety Report 22239864 (Version 2)
Quarter: 2023Q2

REPORT INFORMATION
  Report Type: Report from Study
  Country: JP (occurrence: JP)
  Receive Date: 20230421
  Receipt Date: 20230505
  Transmission Date: 20230722
  Serious: Yes (Hospitalization)
  Sender: FDA-Public Use
  Company Number: JP-TAIHOP-2023-002682

PATIENT
  Age: 52 Year
  Sex: Male
  Weight: 52.9 kg

DRUGS (12)
  1. FUTIBATINIB [Suspect]
     Active Substance: FUTIBATINIB
     Indication: Oesophageal carcinoma
     Dosage: CYCLE 1
     Route: 048
     Dates: start: 20230202, end: 20230214
  2. FUTIBATINIB [Suspect]
     Active Substance: FUTIBATINIB
     Dosage: CYCLE 1
     Route: 048
     Dates: start: 20230215, end: 20230215
  3. FUTIBATINIB [Suspect]
     Active Substance: FUTIBATINIB
     Dosage: CYCLE 1-2
     Route: 048
     Dates: start: 20230216, end: 20230314
  4. FUTIBATINIB [Suspect]
     Active Substance: FUTIBATINIB
     Dosage: CYCLE 3
     Route: 048
     Dates: start: 20230316, end: 20230408
  5. PEMBROLIZUMAB [Suspect]
     Active Substance: PEMBROLIZUMAB
     Indication: Oesophageal carcinoma
     Dosage: CYCLE 1-3
     Route: 042
     Dates: start: 20230202, end: 20230316
  6. FLUOROURACIL [Suspect]
     Active Substance: FLUOROURACIL
     Indication: Oesophageal carcinoma
     Dosage: CYCLE 1
     Route: 042
     Dates: start: 20230202, end: 20230206
  7. FLUOROURACIL [Suspect]
     Active Substance: FLUOROURACIL
     Dosage: CYCLE 2-3
     Route: 042
     Dates: start: 20230224, end: 20230321
  8. CISPLATIN [Suspect]
     Active Substance: CISPLATIN
     Indication: Oesophageal carcinoma
     Dosage: CYCLE 1?DAILY DOSE: 143 MILLIGRAM(S)
     Route: 042
     Dates: start: 20230202, end: 20230202
  9. CISPLATIN [Suspect]
     Active Substance: CISPLATIN
     Dosage: CYCLE 2?DAILY DOSE: 102 MILLIGRAM(S)
     Route: 042
     Dates: start: 20230224, end: 20230224
  10. CISPLATIN [Suspect]
     Active Substance: CISPLATIN
     Dosage: CYCLE 3
     Route: 042
     Dates: start: 20230316, end: 20230316
  11. AUGMENTIN [Suspect]
     Active Substance: AMOXICILLIN\CLAVULANATE POTASSIUM
     Indication: Pneumonia
     Dosage: 4 TABLETS.?DAILY DOSE: 4 DOSAGE FORM
     Route: 050
     Dates: start: 20230330, end: 20230406
  12. AMOXICILLIN [Suspect]
     Active Substance: AMOXICILLIN
     Indication: Pneumonia
     Dosage: DAILY DOSE: 1000 MILLIGRAM(S)
     Route: 050
     Dates: start: 20230330, end: 20230406

REACTIONS (1)
  - Mucosal inflammation [Recovering/Resolving]

NARRATIVE: CASE EVENT DATE: 20230408
